FAERS Safety Report 26057168 (Version 2)
Quarter: 2025Q4

REPORT INFORMATION
  Report Type: Spontaneous
  Country: US (occurrence: US)
  Receive Date: 20251118
  Receipt Date: 20251212
  Transmission Date: 20260118
  Serious: No
  Sender: UNIQUE PHARMACEUTICALS
  Company Number: US-UniquePharma-US-2025UPLSPO00118

PATIENT

DRUGS (1)
  1. LITHIUM CARBONATE [Suspect]
     Active Substance: LITHIUM CARBONATE
     Indication: Product used for unknown indication
     Route: 065

REACTIONS (6)
  - Cognitive disorder [Recovering/Resolving]
  - Sedation complication [Recovering/Resolving]
  - Mood swings [Recovering/Resolving]
  - Therapeutic response decreased [Unknown]
  - Product substitution issue [Unknown]
  - Product quality issue [Unknown]
